FAERS Safety Report 8236672-3 (Version None)
Quarter: 2012Q1

REPORT INFORMATION
  Report Type: 
  Country: None (occurrence: None)
  Receive Date: 20120327
  Receipt Date: 20120314
  Transmission Date: 20120608
  Serious: Yes (Other)
  Sender: FDA-Public Use
  Company Number: US-CELGENEUS-163-21880-12022442

PATIENT
  Sex: Female

DRUGS (22)
  1. REVLIMID [Suspect]
     Dosage: 15 MILLIGRAM
     Route: 048
     Dates: start: 20100209
  2. PREMARIN [Concomitant]
     Dosage: .25 MILLIGRAM
     Route: 067
     Dates: start: 20090108
  3. CELEXA [Concomitant]
     Indication: DEPRESSION
     Dosage: 20 MILLIGRAM
     Route: 065
  4. MULTI FOR HER [Concomitant]
     Route: 065
     Dates: start: 20090108
  5. DOCUSATE SODIUM [Concomitant]
     Dosage: 1 TABLET
     Route: 048
  6. REVLIMID [Suspect]
     Indication: MULTIPLE MYELOMA
     Dosage: 25 MILLIGRAM
     Route: 048
     Dates: start: 20071127, end: 20090921
  7. REVLIMID [Suspect]
     Dosage: 10 MILLIGRAM
     Route: 048
     Dates: start: 20100601, end: 20120213
  8. VITAMIN B-12 [Concomitant]
     Dosage: 1000 MICROGRAM
     Route: 048
     Dates: start: 20090108
  9. CITRACAL + D [Concomitant]
     Route: 048
     Dates: start: 20090108
  10. EXTRA STRENGTH TYLENOL [Concomitant]
     Dosage: 500 MILLIGRAM
     Route: 048
  11. CITALOPRAM HYDROBROMIDE [Concomitant]
     Dosage: 10 MILLIGRAM
     Route: 048
     Dates: start: 20100603
  12. KONSYL [Concomitant]
     Route: 065
     Dates: start: 20090108
  13. MURO 128 [Concomitant]
     Dosage: 1 DROPS
     Route: 065
  14. PROTONIX [Concomitant]
     Dosage: 20 MILLIGRAM
     Route: 048
     Dates: start: 20090331
  15. NASONEX [Concomitant]
     Dosage: 50 MICROGRAM
     Route: 045
  16. MULTI-VITAMINS [Concomitant]
     Dosage: 500 MILLIGRAM
     Route: 065
  17. FLONASE [Concomitant]
     Dosage: 50 MICROGRAM
     Route: 045
  18. ZOMETA [Concomitant]
     Dosage: 4MG/5ML
     Route: 050
     Dates: start: 20090331
  19. N/M ESSENTIAL MULTI WOMAN [Concomitant]
     Route: 065
     Dates: start: 20090108
  20. ASPIRIN [Concomitant]
     Dosage: 81 MILLIGRAM
     Route: 048
     Dates: start: 20090108
  21. ENABLEX [Concomitant]
     Dosage: 1
     Route: 048
  22. PROCRIT [Concomitant]
     Route: 065

REACTIONS (2)
  - OSTEOARTHRITIS [None]
  - ANAEMIA [None]
